FAERS Safety Report 14277192 (Version 1)
Quarter: 2017Q4

REPORT INFORMATION
  Report Type: Spontaneous
  Country: RU (occurrence: RU)
  Receive Date: 20171212
  Receipt Date: 20171212
  Transmission Date: 20180321
  Serious: Yes (Other)
  Sender: FDA-Public Use
  Company Number: RU-ASTRAZENECA-2017SF25631

PATIENT
  Age: 76 Year
  Sex: Male
  Weight: 90 kg

DRUGS (5)
  1. LORISTA [Concomitant]
     Active Substance: LOSARTAN POTASSIUM
  2. FORXIGA [Suspect]
     Active Substance: DAPAGLIFLOZIN
     Indication: TYPE 2 DIABETES MELLITUS
     Route: 048
  3. GALVUS MET [Concomitant]
     Active Substance: METFORMIN HYDROCHLORIDE\VILDAGLIPTIN
  4. ASPIRIN. [Concomitant]
     Active Substance: ASPIRIN
  5. BETALOC [Suspect]
     Active Substance: METOPROLOL TARTRATE
     Route: 048

REACTIONS (3)
  - Gangrene [Unknown]
  - Leg amputation [Unknown]
  - Drug hypersensitivity [Unknown]

NARRATIVE: CASE EVENT DATE: 201612
